FAERS Safety Report 12356824 (Version 1)
Quarter: 2016Q2

REPORT INFORMATION
  Report Type: Spontaneous
  Country: US (occurrence: US)
  Receive Date: 20160511
  Receipt Date: 20160511
  Transmission Date: 20160815
  Serious: No
  Sender: FDA-Public Use
  Company Number: US-PFIZER INC-2016218594

PATIENT
  Age: 37 Year
  Sex: Female
  Weight: 64 kg

DRUGS (6)
  1. TROKENDI [Concomitant]
     Active Substance: TOPIRAMATE
     Indication: SEIZURE
     Dosage: 200 MG, 1X/DAY
     Route: 048
  2. ZOLOFT [Concomitant]
     Active Substance: SERTRALINE HYDROCHLORIDE
     Indication: POST-TRAUMATIC STRESS DISORDER
     Dosage: UNK, 1X/DAY, AT NIGHT
  3. MELOXICAM. [Concomitant]
     Active Substance: MELOXICAM
     Indication: SWELLING
     Dosage: 15 MG, 1X/DAY
     Dates: start: 201602
  4. LYRICA [Suspect]
     Active Substance: PREGABALIN
     Indication: FIBROMYALGIA
     Dosage: 75 MG, 2X/DAY
     Route: 048
     Dates: start: 20160202
  5. ARMOUR THYROID [Concomitant]
     Active Substance: THYROID, PORCINE
     Indication: THYROID DISORDER
     Dosage: 120 MG, 1X/DAY
     Dates: start: 2007
  6. FLEXERIL [Concomitant]
     Active Substance: CYCLOBENZAPRINE HYDROCHLORIDE
     Indication: SLEEP DISORDER
     Dosage: 10 MG, 1X/DAY, AT NIGHT
     Dates: start: 201602

REACTIONS (2)
  - Weight increased [Not Recovered/Not Resolved]
  - Drug effect incomplete [Unknown]
